FAERS Safety Report 9795969 (Version 1)
Quarter: 2014Q1

REPORT INFORMATION
  Report Type: Spontaneous
  Country: US (occurrence: US)
  Receive Date: 20140103
  Receipt Date: 20140103
  Transmission Date: 20141002
  Serious: Yes (Other)
  Sender: FDA-Public Use
  Company Number: US-B.I. PHARMACEUTICALS,INC./RIDGEFIELD-2013-BI-44070BP

PATIENT
  Age: 67 Year
  Sex: Male

DRUGS (1)
  1. MELOXICAM [Suspect]
     Dates: start: 201211, end: 201302

REACTIONS (3)
  - Myocardial infarction [Unknown]
  - Arterial occlusive disease [Unknown]
  - Thrombosis [Unknown]
